FAERS Safety Report 24919403 (Version 1)
Quarter: 2025Q1

REPORT INFORMATION
  Report Type: Spontaneous
  Country: CA (occurrence: CA)
  Receive Date: 20250204
  Receipt Date: 20250204
  Transmission Date: 20250409
  Serious: Yes (Other)
  Sender: BEIGENE
  Company Number: CA-BEIGENE-BGN-2025-001531

PATIENT
  Age: 77 Year

DRUGS (1)
  1. BRUKINSA [Suspect]
     Active Substance: ZANUBRUTINIB
     Indication: Mantle cell lymphoma
     Dosage: 320 MILLIGRAM, QD

REACTIONS (9)
  - Suicidal ideation [Unknown]
  - Mental impairment [Unknown]
  - Depression [Unknown]
  - Disturbance in attention [Unknown]
  - Weight fluctuation [Unknown]
  - Sleep disorder [Unknown]
  - Throat irritation [Unknown]
  - Personality change [Unknown]
  - Cough [Unknown]
